FAERS Safety Report 12101736 (Version 1)
Quarter: 2016Q1

REPORT INFORMATION
  Report Type: Spontaneous
  Country: CA (occurrence: CA)
  Receive Date: 20160222
  Receipt Date: 20160222
  Transmission Date: 20160526
  Serious: Yes (Disabling, Other)
  Sender: FDA-Public Use
  Company Number: CA-PFIZER INC-2016097269

PATIENT
  Age: 46 Year
  Sex: Female

DRUGS (6)
  1. MS CONTIN [Concomitant]
     Active Substance: MORPHINE SULFATE
     Dosage: 15 MG, UNK
  2. PRO-FLUCONAZOLE [Concomitant]
  3. TOVIAZ [Suspect]
     Active Substance: FESOTERODINE FUMARATE
     Indication: HYPERTONIC BLADDER
     Dosage: 8 MG, 1X/DAY
     Route: 048
  4. OXAZEPAM. [Concomitant]
     Active Substance: OXAZEPAM
  5. PROTYLOL [Concomitant]
  6. TRAZODONE [Concomitant]
     Active Substance: TRAZODONE HYDROCHLORIDE

REACTIONS (3)
  - Hyperaesthesia [Recovered/Resolved]
  - Skin burning sensation [Recovered/Resolved]
  - Urticaria thermal [Recovered/Resolved]
